FAERS Safety Report 16267220 (Version 2)
Quarter: 2019Q4

REPORT INFORMATION
  Report Type: Report from Study
  Country: GB (occurrence: GB)
  Receive Date: 20190502
  Receipt Date: 20191121
  Transmission Date: 20200122
  Serious: Yes (Hospitalization, Other)
  Sender: FDA-Public Use
  Company Number: PHHY2019GB100053

PATIENT
  Age: 68 Year
  Sex: Female
  Weight: 77.9 kg

DRUGS (2)
  1. HYRIMOZ [Suspect]
     Active Substance: ADALIMUMAB-ADAZ
     Indication: COLITIS ULCERATIVE
     Dosage: 40 MG, FORTNIGHTLY
     Route: 065
     Dates: start: 20190328
  2. HYRIMOZ [Suspect]
     Active Substance: ADALIMUMAB-ADAZ
     Dosage: 40 MG, QW
     Route: 058
     Dates: start: 20190402, end: 20190906

REACTIONS (7)
  - Haemoglobin increased [Unknown]
  - C-reactive protein increased [Unknown]
  - Diarrhoea haemorrhagic [Recovered/Resolved with Sequelae]
  - Blood calcium decreased [Unknown]
  - Drug ineffective [Unknown]
  - Fatigue [Unknown]
  - Abdominal pain [Recovered/Resolved with Sequelae]

NARRATIVE: CASE EVENT DATE: 20190629
